FAERS Safety Report 8481694-0 (Version None)
Quarter: 2012Q3

REPORT INFORMATION
  Report Type: 
  Country: None (occurrence: None)
  Receive Date: 20120702
  Receipt Date: 20120621
  Transmission Date: 20120928
  Serious: Yes (Hospitalization)
  Sender: FDA-Public Use
  Company Number: FR-ASTRAZENECA-2012SE22730

PATIENT
  Age: 7388 Day
  Sex: Female

DRUGS (3)
  1. MONTELUKAST SODIUM [Suspect]
     Dates: start: 20120331
  2. PULMICORT [Suspect]
     Route: 055
     Dates: start: 20120331
  3. DESLORATADINE [Suspect]
     Route: 048
     Dates: start: 20120331

REACTIONS (1)
  - IDIOPATHIC THROMBOCYTOPENIC PURPURA [None]
